FAERS Safety Report 10752116 (Version 1)
Quarter: 2015Q1

REPORT INFORMATION
  Report Type: Spontaneous
  Country: US (occurrence: None)
  Receive Date: 20150129
  Receipt Date: 20150129
  Transmission Date: 20150721
  Serious: Yes (Life-Threatening, Hospitalization, Other)
  Sender: FDA-Public Use
  Company Number: None

PATIENT
  Age: 83 Year
  Sex: Male
  Weight: 79 kg

DRUGS (21)
  1. SPIRONOLACTONE (ALDACTONE) [Concomitant]
  2. ALBUTEROL-IPRATROPIUM [Concomitant]
  3. AZATHIOPRINE (IMURAN) [Concomitant]
  4. MESALAMINE (ASACOL HD) [Concomitant]
  5. GABAPENTIN (NEURONTIN) [Concomitant]
  6. ATENOLOL (TENORMIN) [Concomitant]
  7. ERGOCALCIFEROL (DRISDOL) [Concomitant]
  8. HYDROMORPHONE [Suspect]
     Active Substance: HYDROMORPHONE
     Indication: SEDATION
     Route: 042
  9. PREDNISONE (DELTASONE) [Concomitant]
  10. AMLODIPINE (NORVASC) [Concomitant]
  11. WARFARIN (COUMADIN) [Concomitant]
  12. MULTIPLE VITAMINS-MINERALS (MULTIVITAL PO) [Concomitant]
  13. MIDAZOLAM [Suspect]
     Active Substance: MIDAZOLAM\MIDAZOLAM HYDROCHLORIDE
     Indication: SEDATION
  14. STEROID TAPER [Concomitant]
  15. DIPHENOXYLATE-ATROPINE (LOMOTIL) [Concomitant]
  16. MEMANTINE (NAMENDA) [Concomitant]
  17. FLUNISOLIDE. [Concomitant]
     Active Substance: FLUNISOLIDE
  18. CALCIUM-VITAMIN D [Concomitant]
  19. MULTIPLE VITAMINS MINERALS (I-VITE) [Concomitant]
  20. ADALIMUMAB (HUMIRA) [Concomitant]
  21. FUROSEMIDE (LASIX) [Concomitant]

REACTIONS (3)
  - Miosis [None]
  - Unresponsive to stimuli [None]
  - Pneumothorax [None]

NARRATIVE: CASE EVENT DATE: 20140302
